FAERS Safety Report 23126607 (Version 2)
Quarter: 2024Q4

REPORT INFORMATION
  Report Type: Report from Study
  Country: US (occurrence: US)
  Receive Date: 20231030
  Receipt Date: 20241127
  Transmission Date: 20250115
  Serious: Yes (Other)
  Sender: NOVARTIS
  Company Number: US-002147023-NVSC2023US230184

PATIENT
  Age: 31 Year
  Sex: Male

DRUGS (1)
  1. ENTRESTO [Suspect]
     Active Substance: SACUBITRIL\VALSARTAN
     Indication: Product used for unknown indication
     Dosage: UNK
     Route: 065

REACTIONS (5)
  - Myocardial infarction [Not Recovered/Not Resolved]
  - Dyspnoea [Unknown]
  - Chest discomfort [Unknown]
  - Peripheral swelling [Unknown]
  - Cardiomegaly [Unknown]

NARRATIVE: CASE EVENT DATE: 20231011
